FAERS Safety Report 6388978-0 (Version None)
Quarter: 2009Q4

REPORT INFORMATION
  Report Type: 
  Country: None (occurrence: None)
  Receive Date: 20091001
  Receipt Date: 20090922
  Transmission Date: 20100525
  Serious: Yes (Other)
  Sender: FDA-Public Use
  Company Number: ADR28092009

PATIENT
  Age: 67 Year
  Sex: Female

DRUGS (6)
  1. RAMIPRIL [Suspect]
     Indication: MYOCARDIAL INFARCTION
  2. SIMVASTATIN [Suspect]
     Indication: MYOCARDIAL INFARCTION
  3. ASPIRIN [Concomitant]
  4. CARDICOR (UNKNOWN) [Concomitant]
  5. PLAVIX [Concomitant]
  6. PREGABALIN (300 MG) [Concomitant]

REACTIONS (3)
  - DRUG INEFFECTIVE [None]
  - DRUG INTERACTION [None]
  - MYOCARDIAL INFARCTION [None]
